FAERS Safety Report 5297982-5 (Version None)
Quarter: 2007Q2

REPORT INFORMATION
  Report Type: 
  Country: None (occurrence: None)
  Receive Date: 20070416
  Receipt Date: 20070413
  Transmission Date: 20071010
  Serious: Yes (Hospitalization)
  Sender: FDA-Public Use
  Company Number: US-BRISTOL-MYERS SQUIBB COMPANY-13747035

PATIENT
  Age: 66 Year
  Sex: Female

DRUGS (14)
  1. CYTOXAN [Suspect]
     Indication: BREAST CANCER
     Route: 042
     Dates: start: 20061130, end: 20061130
  2. ADRIAMYCIN PFS [Suspect]
     Indication: BREAST CANCER
     Route: 042
     Dates: start: 20061130, end: 20061130
  3. BEVACIZUMAB [Suspect]
     Indication: BREAST CANCER
     Route: 042
     Dates: start: 20061130, end: 20061130
  4. NEULASTA [Suspect]
     Indication: COLONY STIMULATING FACTOR PROPHYLAXIS
     Route: 058
     Dates: start: 20061201, end: 20061201
  5. ZETIA [Concomitant]
  6. LEXAPRO [Concomitant]
  7. PROTONIX [Concomitant]
  8. AMBIEN [Concomitant]
  9. TRAMADOL HCL [Concomitant]
  10. IBUPROFEN [Concomitant]
  11. PALONOSETRON [Concomitant]
     Indication: NAUSEA
     Route: 042
     Dates: start: 20061130, end: 20061201
  12. PALONOSETRON [Concomitant]
     Indication: PREMEDICATION
     Route: 042
     Dates: start: 20061130, end: 20061201
  13. DEXAMETHASONE [Concomitant]
     Indication: PREMEDICATION
     Route: 042
     Dates: start: 20061130, end: 20061201
  14. LORAZEPAM [Concomitant]
     Indication: PREMEDICATION
     Route: 042
     Dates: start: 20061130, end: 20061201

REACTIONS (5)
  - CATHETER SEPSIS [None]
  - CATHETER SITE CELLULITIS [None]
  - HYPOKALAEMIA [None]
  - PANCYTOPENIA [None]
  - SYNCOPE [None]
